FAERS Safety Report 17621211 (Version 1)
Quarter: 2020Q2

REPORT INFORMATION
  Report Type: Spontaneous
  Country: US (occurrence: US)
  Receive Date: 20200402
  Receipt Date: 20200402
  Transmission Date: 20200713
  Serious: No
  Sender: FDA-Public Use
  Company Number: None

PATIENT

DRUGS (1)
  1. COMPOUND W [Suspect]
     Active Substance: SALICYLIC ACID
     Indication: SKIN PAPILLOMA

REACTIONS (6)
  - Renal injury [None]
  - Product formulation issue [None]
  - Product taste abnormal [None]
  - Tinnitus [None]
  - Breath odour [None]
  - Malaise [None]

NARRATIVE: CASE EVENT DATE: 20200316
